FAERS Safety Report 8322080-3 (Version None)
Quarter: 2012Q2

REPORT INFORMATION
  Report Type: 
  Country: None (occurrence: None)
  Receive Date: 20120430
  Receipt Date: 20120419
  Transmission Date: 20120825
  Serious: Yes (Hospitalization)
  Sender: FDA-Public Use
  Company Number: AU-ROCHE-1061826

PATIENT
  Sex: Female

DRUGS (2)
  1. ACETAMINOPHEN AND CODEINE PHOSPHATE [Suspect]
     Indication: PRODUCT USED FOR UNKNOWN INDICATION
     Dates: start: 20120128
  2. TORADOL [Suspect]
     Indication: BACK PAIN
     Dates: start: 20120228

REACTIONS (4)
  - RENAL FAILURE ACUTE [None]
  - VOMITING [None]
  - HYPOPHAGIA [None]
  - NAUSEA [None]
